FAERS Safety Report 23875474 (Version 4)
Quarter: 2024Q3

REPORT INFORMATION
  Report Type: Report from Study
  Country: CA (occurrence: CA)
  Receive Date: 20240520
  Receipt Date: 20240729
  Transmission Date: 20241016
  Serious: Yes (Hospitalization, Other)
  Sender: OTSUKA
  Company Number: CA-OTSUKA-2024_013681

PATIENT
  Sex: Male

DRUGS (1)
  1. ARIPIPRAZOLE [Suspect]
     Active Substance: ARIPIPRAZOLE
     Indication: Schizophrenia
     Dosage: 400 MG, QM (EVERY 30 DAYS)
     Route: 030
     Dates: start: 2021

REACTIONS (4)
  - Osteomyelitis [Unknown]
  - Diabetic foot [Unknown]
  - Abscess limb [Unknown]
  - Inappropriate schedule of product administration [Unknown]
